FAERS Safety Report 5633174-5 (Version None)
Quarter: 2008Q1

REPORT INFORMATION
  Report Type: 
  Country: None (occurrence: None)
  Receive Date: 20080221
  Receipt Date: 20080213
  Transmission Date: 20080703
  Serious: Yes (Other)
  Sender: FDA-Public Use
  Company Number: US-ASTRAZENECA-2008UW03037

PATIENT
  Age: 58 Year
  Sex: Female
  Weight: 71.2 kg

DRUGS (14)
  1. SEROQUEL [Suspect]
     Indication: DEPRESSION
     Route: 048
     Dates: start: 20030101, end: 20061201
  2. ATARAL [Concomitant]
  3. CLONAZEPAM [Concomitant]
  4. PROZAC [Concomitant]
  5. DIOVAN HCT [Concomitant]
  6. CLONIDINE [Concomitant]
  7. NASACORT [Concomitant]
  8. SYNTHROID [Concomitant]
  9. ZYRTEC [Concomitant]
  10. PREMARIN [Concomitant]
  11. ALFAGAM GTT [Concomitant]
  12. PRILOSEC [Concomitant]
  13. ASTHMADEX [Concomitant]
  14. ZANTAC 150 [Concomitant]

REACTIONS (6)
  - ARTHRALGIA [None]
  - HEADACHE [None]
  - HYPERTENSION [None]
  - HYPOAESTHESIA [None]
  - NEUROPATHY PERIPHERAL [None]
  - WEIGHT INCREASED [None]
